FAERS Safety Report 11279148 (Version 1)
Quarter: 2015Q3

REPORT INFORMATION
  Report Type: Spontaneous
  Country: US (occurrence: None)
  Receive Date: 20150716
  Receipt Date: 20150716
  Transmission Date: 20151125
  Serious: Yes (Other)
  Sender: FDA-Public Use
  Company Number: None

PATIENT
  Age: 58 Year
  Sex: Female

DRUGS (2)
  1. BUPIVACAINE [Suspect]
     Active Substance: BUPIVACAINE
     Indication: SPINAL ANAESTHESIA
     Dates: start: 20150715, end: 20150715
  2. BUPIVACAINE [Suspect]
     Active Substance: BUPIVACAINE
     Indication: JOINT ARTHROPLASTY
     Dates: start: 20150715, end: 20150715

REACTIONS (3)
  - Pain in extremity [None]
  - Muscle rigidity [None]
  - Hypertension [None]

NARRATIVE: CASE EVENT DATE: 20150715
